FAERS Safety Report 5470944-0 (Version None)
Quarter: 2007Q3

REPORT INFORMATION
  Report Type: 
  Country: None (occurrence: None)
  Receive Date: 20070928
  Receipt Date: 20070920
  Transmission Date: 20080115
  Serious: Yes (Hospitalization)
  Sender: FDA-Public Use
  Company Number: DE-AMGEN-US216577

PATIENT
  Sex: Female
  Weight: 73 kg

DRUGS (9)
  1. ENBREL [Suspect]
     Indication: RHEUMATOID ARTHRITIS
     Route: 058
     Dates: start: 20061201, end: 20070118
  2. ENBREL [Suspect]
     Route: 058
     Dates: start: 20070201, end: 20070201
  3. ARAVA [Suspect]
     Indication: RHEUMATOID ARTHRITIS
     Route: 048
     Dates: start: 20070101
  4. SIMVASTATIN [Concomitant]
  5. REMIFEMIN PLUS [Concomitant]
  6. OMEPRAZOLE [Concomitant]
  7. CALCIUM [Concomitant]
  8. COLECALCIFEROL [Concomitant]
  9. PREDNISOLONE [Concomitant]
     Route: 048

REACTIONS (2)
  - GASTROENTERITIS CLOSTRIDIAL [None]
  - GASTROENTERITIS NORWALK VIRUS [None]
